FAERS Safety Report 6029034-0 (Version None)
Quarter: 2009Q1

REPORT INFORMATION
  Report Type: 
  Country: None (occurrence: None)
  Receive Date: 20090106
  Receipt Date: 20081226
  Transmission Date: 20090719
  Serious: Yes (Other)
  Sender: FDA-Public Use
  Company Number: JP-ELI_LILLY_AND_COMPANY-JP200812003489

PATIENT
  Sex: Female

DRUGS (4)
  1. ZYPREXA [Suspect]
     Indication: PSYCHIATRIC SYMPTOM
     Route: 048
     Dates: start: 20080101, end: 20081101
  2. ZYPREXA [Suspect]
     Dosage: 7.5 MG, EACH EVENING
     Route: 048
     Dates: start: 20081101, end: 20081201
  3. ZYPREXA [Suspect]
     Dosage: 5 MG, DAILY (1/D)
     Route: 048
     Dates: start: 20081201
  4. MAGNESIUM OXIDE [Concomitant]
     Route: 048

REACTIONS (3)
  - CEREBRAL ATROPHY [None]
  - GRAND MAL CONVULSION [None]
  - LOSS OF CONSCIOUSNESS [None]
